FAERS Safety Report 16083300 (Version 1)
Quarter: 2019Q1

REPORT INFORMATION
  Report Type: Spontaneous
  Country: US (occurrence: US)
  Receive Date: 20190318
  Receipt Date: 20190318
  Transmission Date: 20190418
  Serious: No
  Sender: FDA-Public Use
  Company Number: US-VERTEX PHARMACEUTICALS-2019-002234

PATIENT
  Sex: Female

DRUGS (14)
  1. ZENPEP [Concomitant]
     Active Substance: PANCRELIPASE AMYLASE\PANCRELIPASE LIPASE\PANCRELIPASE PROTEASE
  2. NOVOLOG [Concomitant]
     Active Substance: INSULIN ASPART
  3. HYPERSAL [Concomitant]
  4. SYMDEKO [Suspect]
     Active Substance: IVACAFTOR\TEZACAFTOR
     Indication: CYSTIC FIBROSIS
     Dosage: UNK
     Route: 048
     Dates: start: 2018
  5. URSODIOL. [Concomitant]
     Active Substance: URSODIOL
  6. LANTUS [Concomitant]
     Active Substance: INSULIN GLARGINE
  7. AZITHROMYCIN ANHYDROUS. [Concomitant]
     Active Substance: AZITHROMYCIN ANHYDROUS
  8. VITAMIN D                          /00107901/ [Concomitant]
     Active Substance: ERGOCALCIFEROL
  9. VITAMIN A                          /00056001/ [Concomitant]
     Active Substance: RETINOL
  10. VITAMIN K [Concomitant]
     Active Substance: PHYTONADIONE
  11. PULMOZYME [Concomitant]
     Active Substance: DORNASE ALFA
  12. CAYSTON [Concomitant]
     Active Substance: AZTREONAM
  13. ALBUTEROL SULFATE. [Concomitant]
     Active Substance: ALBUTEROL SULFATE
  14. ADVAIR HFA [Concomitant]
     Active Substance: FLUTICASONE PROPIONATE\SALMETEROL XINAFOATE

REACTIONS (2)
  - Dizziness [Unknown]
  - Anxiety [Unknown]

NARRATIVE: CASE EVENT DATE: 2018
